FAERS Safety Report 11361823 (Version 7)
Quarter: 2018Q2

REPORT INFORMATION
  Report Type: Report from Study
  Country: CA (occurrence: CA)
  Receive Date: 20150810
  Receipt Date: 20180606
  Transmission Date: 20180711
  Serious: Yes (Hospitalization, Other)
  Sender: FDA-Public Use
  Company Number: PHHY2011CA38034

PATIENT
  Age: 68 Year
  Sex: Male

DRUGS (5)
  1. SANDOSTATIN LAR DEPOT [Suspect]
     Active Substance: OCTREOTIDE ACETATE
     Indication: NEUROENDOCRINE TUMOUR
     Dosage: 30 MG, QMO (ONCE A MONTH/EVERY 4 WEEKS)
     Route: 030
     Dates: start: 20110401, end: 20121217
  2. SANDOSTATIN LAR DEPOT [Suspect]
     Active Substance: OCTREOTIDE ACETATE
     Dosage: 30 MG, QMO (EVERY 4 WEEKS)
     Route: 030
     Dates: start: 20130621
  3. CRESTOR [Concomitant]
     Active Substance: ROSUVASTATIN CALCIUM
     Indication: PRODUCT USED FOR UNKNOWN INDICATION
     Dosage: UNK
     Route: 065
  4. RAMIPRIL. [Suspect]
     Active Substance: RAMIPRIL
     Indication: PRODUCT USED FOR UNKNOWN INDICATION
     Dosage: 5 MG, QD (DAILY)
     Route: 048
  5. SANDOSTATIN [Suspect]
     Active Substance: OCTREOTIDE ACETATE
     Indication: NEUROENDOCRINE TUMOUR
     Dosage: 20 MG, ONCE/SINGLE
     Route: 058
     Dates: start: 20110301, end: 20110301

REACTIONS (20)
  - Arthralgia [Unknown]
  - Needle issue [Unknown]
  - Blood test abnormal [Unknown]
  - Injection site mass [Recovering/Resolving]
  - Underdose [Unknown]
  - Cough [Recovering/Resolving]
  - Injection site pain [Unknown]
  - Cholangitis infective [Unknown]
  - Blood pressure increased [Unknown]
  - Diabetes mellitus [Unknown]
  - Malignant neoplasm progression [Unknown]
  - Metastases to spine [Unknown]
  - Body temperature decreased [Unknown]
  - Nasopharyngitis [Recovering/Resolving]
  - Urine analysis abnormal [Unknown]
  - Blood chromogranin A increased [Unknown]
  - Blood pressure systolic increased [Unknown]
  - Blood glucose increased [Recovered/Resolved]
  - 5-hydroxyindolacetic acid in urine increased [Unknown]
  - Injection site scar [Unknown]

NARRATIVE: CASE EVENT DATE: 20141009
